FAERS Safety Report 6174954-X (Version None)
Quarter: 2009Q2

REPORT INFORMATION
  Report Type: 
  Country: None (occurrence: None)
  Receive Date: 20090430
  Receipt Date: 20081022
  Transmission Date: 20091009
  Serious: No
  Sender: FDA-Public Use
  Company Number: US-ASTRAZENECA-2008UW23555

PATIENT
  Age: 82 Year
  Sex: Female

DRUGS (2)
  1. NEXIUM [Suspect]
     Indication: DUODENITIS
     Route: 048
  2. MICARDIS [Concomitant]

REACTIONS (4)
  - DIZZINESS [None]
  - EUPHORIC MOOD [None]
  - FEELING DRUNK [None]
  - GAIT DISTURBANCE [None]
